APPROVED DRUG PRODUCT: ILOTYCIN
Active Ingredient: ERYTHROMYCIN
Strength: 0.5% **Federal Register determination that product was not discontinued or withdrawn for safety or effectiveness reasons**
Dosage Form/Route: OINTMENT;OPHTHALMIC
Application: N050368 | Product #001
Applicant: DISTA PRODUCTS CO DIV ELI LILLY AND CO
Approved: Approved Prior to Jan 1, 1982 | RLD: No | RS: No | Type: DISCN